FAERS Safety Report 4638190-8 (Version None)
Quarter: 2005Q2

REPORT INFORMATION
  Report Type: 
  Country: None (occurrence: None)
  Receive Date: 20050418
  Receipt Date: 20050405
  Transmission Date: 20051028
  Serious: Yes (Death)
  Sender: FDA-Public Use
  Company Number: SUSI-2005-00271

PATIENT
  Age: 17 Year
  Sex: Female
  Weight: 135.6 kg

DRUGS (2)
  1. ADDERALL XR 10 [Suspect]
     Indication: HYPERPHAGIA
     Dosage: 60 MG, 1X/DAY;QD, UNK
     Dates: start: 20031112, end: 20050323
  2. GLUCOPAHGE           (METFORMIN) [Concomitant]

REACTIONS (8)
  - BLOOD PRESSURE INCREASED [None]
  - CARDIOMEGALY [None]
  - OFF LABEL USE [None]
  - PRESCRIBED OVERDOSE [None]
  - SUDDEN CARDIAC DEATH [None]
  - TREATMENT NONCOMPLIANCE [None]
  - VENTRICULAR HYPERTROPHY [None]
  - WEIGHT INCREASED [None]
